FAERS Safety Report 4559134-3 (Version None)
Quarter: 2005Q1

REPORT INFORMATION
  Report Type: 
  Country: None (occurrence: None)
  Receive Date: 20050121
  Receipt Date: 20050121
  Transmission Date: 20050727
  Serious: No
  Sender: FDA-Public Use
  Company Number: None

PATIENT
  Age: 67 Year
  Sex: Female
  Weight: 70.3 kg

DRUGS (4)
  1. DICLOFENAC (DICLOFENAC SODIUM) TABLET (DELAYED RELEASE), 75MG [Suspect]
     Indication: CARPAL TUNNEL SYNDROME
     Dosage: 1 TABLET BID-TID, ORAL
     Route: 048
     Dates: start: 20040318
  2. ASPIRIN [Concomitant]
  3. FOSAMAX [Concomitant]
  4. HYDROCHLOROTHIAZIDE [Concomitant]

REACTIONS (2)
  - HYPOACUSIS [None]
  - MEDICATION ERROR [None]
